FAERS Safety Report 21975649 (Version 3)
Quarter: 2023Q1

REPORT INFORMATION
  Report Type: Report from Study
  Country: DE (occurrence: None)
  Receive Date: 20230210
  Receipt Date: 20230301
  Transmission Date: 20230418
  Serious: Yes (Hospitalization)
  Sender: FDA-Public Use
  Company Number: DE-Merck Healthcare KGaA-9381542

PATIENT
  Age: 21 Year
  Sex: Male

DRUGS (4)
  1. SAIZEN [Suspect]
     Active Substance: SOMATROPIN
     Indication: Growth hormone deficiency
     Dosage: 0.40 (UNITS UNSPECIFIED)
     Route: 058
     Dates: start: 20060424
  2. SAIZEN [Suspect]
     Active Substance: SOMATROPIN
     Route: 058
  3. LEVOTHYROXINE [Concomitant]
     Active Substance: LEVOTHYROXINE
     Indication: Product used for unknown indication
     Dosage: 100 (UNSPECIFIED UNIT)
  4. MINIRIN [Concomitant]
     Active Substance: DESMOPRESSIN ACETATE
     Indication: Product used for unknown indication
     Dosage: NASAL SPRAY 2X1 PUFF
     Route: 045

REACTIONS (3)
  - Depression [Recovering/Resolving]
  - Suicidal ideation [Unknown]
  - Dizziness [Unknown]

NARRATIVE: CASE EVENT DATE: 20221025
